FAERS Safety Report 14674812 (Version 1)
Quarter: 2018Q1

REPORT INFORMATION
  Report Type: Spontaneous
  Country: MX (occurrence: MX)
  Receive Date: 20180323
  Receipt Date: 20180323
  Transmission Date: 20180509
  Serious: Yes (Death, Other)
  Sender: FDA-Public Use
  Company Number: MX-PFIZER INC-2018092766

PATIENT

DRUGS (1)
  1. CAVERJECT [Suspect]
     Active Substance: ALPROSTADIL
     Route: 064

REACTIONS (2)
  - Maternal exposure during pregnancy [Unknown]
  - Death [Fatal]

NARRATIVE: CASE EVENT DATE: 20180312
